FAERS Safety Report 11610464 (Version 6)
Quarter: 2016Q2

REPORT INFORMATION
  Report Type: Report from Study
  Country: CA (occurrence: CA)
  Receive Date: 20151008
  Receipt Date: 20160422
  Transmission Date: 20160815
  Serious: Yes (Life-Threatening, Hospitalization, Other)
  Sender: FDA-Public Use
  Company Number: CA-ABBVIE-15K-028-1474709-00

PATIENT
  Age: 57 Year
  Sex: Male
  Weight: 81.72 kg

DRUGS (5)
  1. HUMIRA [Suspect]
     Active Substance: ADALIMUMAB
     Route: 058
     Dates: start: 20160412
  2. HUMIRA [Suspect]
     Active Substance: ADALIMUMAB
     Indication: ANKYLOSING SPONDYLITIS
     Route: 058
     Dates: start: 20160112, end: 201602
  3. WARFARIN [Suspect]
     Active Substance: WARFARIN
     Route: 065
     Dates: start: 20160220
  4. HUMIRA [Suspect]
     Active Substance: ADALIMUMAB
     Indication: CROHN^S DISEASE
     Route: 058
     Dates: start: 20130115, end: 201512
  5. WARFARIN [Suspect]
     Active Substance: WARFARIN
     Indication: ANTICOAGULANT THERAPY
     Route: 065

REACTIONS (17)
  - Pelvi-ureteric obstruction [Unknown]
  - Haematuria [Recovered/Resolved]
  - Nephrolithiasis [Unknown]
  - Haematuria [Recovered/Resolved]
  - Spinal pain [Not Recovered/Not Resolved]
  - Cardio-respiratory arrest [Unknown]
  - Post procedural haemorrhage [Unknown]
  - Colectomy [Unknown]
  - Biliary colic [Recovered/Resolved]
  - Cholelithiasis [Not Recovered/Not Resolved]
  - Pyelocaliectasis [Unknown]
  - Chest pain [Not Recovered/Not Resolved]
  - Joint ankylosis [Unknown]
  - Blood pressure abnormal [Unknown]
  - Intestinal anastomosis [Unknown]
  - Bladder wall calcification [Unknown]
  - Sacroiliitis [Unknown]

NARRATIVE: CASE EVENT DATE: 20150925
